FAERS Safety Report 21140383 (Version 1)
Quarter: 2022Q3

REPORT INFORMATION
  Report Type: Spontaneous
  Country: CA (occurrence: None)
  Receive Date: 20220728
  Receipt Date: 20220728
  Transmission Date: 20221026
  Serious: Yes (Death, Hospitalization)
  Sender: FDA-Public Use
  Company Number: CA-ROCHE-3146339

PATIENT
  Age: 56 Year
  Sex: Male

DRUGS (25)
  1. RITUXIMAB [Suspect]
     Active Substance: RITUXIMAB
     Indication: Immune thrombocytopenia
     Route: 042
  2. GRAMICIDIN [Concomitant]
     Active Substance: GRAMICIDIN
  3. NEOMYCIN SULFATE [Concomitant]
     Active Substance: NEOMYCIN SULFATE
  4. POLYMYXIN B SULFATE [Concomitant]
     Active Substance: POLYMYXIN B SULFATE
  5. ALLOPURINOL [Concomitant]
     Active Substance: ALLOPURINOL
  6. CALCIUM CARBONATE [Concomitant]
     Active Substance: CALCIUM CARBONATE
  7. ELTROMBOPAG [Concomitant]
     Active Substance: ELTROMBOPAG
  8. ACETAMINOPHEN [Concomitant]
     Active Substance: ACETAMINOPHEN
  9. MAGNESIUM OXIDE [Concomitant]
     Active Substance: MAGNESIUM OXIDE
  10. FLUDROCORTISONE [Concomitant]
     Active Substance: FLUDROCORTISONE
  11. DIMENHYDRINATE [Concomitant]
     Active Substance: DIMENHYDRINATE
  12. ERYTHROPOIETIN [Concomitant]
     Active Substance: ERYTHROPOIETIN
  13. TINZAPARIN [Concomitant]
     Active Substance: TINZAPARIN
  14. ATORVASTATIN CALCIUM [Concomitant]
     Active Substance: ATORVASTATIN CALCIUM
  15. VITAMIN D [Concomitant]
     Active Substance: VITAMIN D NOS
  16. FOLIC ACID [Concomitant]
     Active Substance: FOLIC ACID
  17. BISOPROLOL [Concomitant]
     Active Substance: BISOPROLOL
  18. BETAMETHASONE [Concomitant]
     Active Substance: BETAMETHASONE
  19. SODIUM BICARBONATE [Concomitant]
     Active Substance: SODIUM BICARBONATE
  20. METOLAZONE [Concomitant]
     Active Substance: METOLAZONE
  21. BETA CAROTENE [Concomitant]
     Active Substance: BETA CAROTENE
  22. METHYLPREDNISOLONE [Concomitant]
     Active Substance: METHYLPREDNISOLONE
  23. PERINDOPRIL [Concomitant]
     Active Substance: PERINDOPRIL
  24. PREDNISONE [Concomitant]
     Active Substance: PREDNISONE
  25. PANTOPRAZOLE [Concomitant]
     Active Substance: PANTOPRAZOLE

REACTIONS (3)
  - Pulmonary embolism [Fatal]
  - Cardiac arrest [Fatal]
  - Off label use [Fatal]
